FAERS Safety Report 11490310 (Version 1)
Quarter: 2015Q3

REPORT INFORMATION
  Report Type: Spontaneous
  Country: US (occurrence: US)
  Receive Date: 20150909
  Receipt Date: 20150909
  Transmission Date: 20151125
  Serious: No
  Sender: FDA-Public Use
  Company Number: US-JAZZ-2015-US-006605

PATIENT
  Age: 77 Year
  Sex: Male
  Weight: 118.82 kg

DRUGS (29)
  1. SPIRONOLACTONE. [Concomitant]
     Active Substance: SPIRONOLACTONE
     Indication: OEDEMA
     Dosage: 25 MG, UNK
     Dates: start: 20150326
  2. MILK THISTLE [Concomitant]
     Active Substance: MILK THISTLE
     Indication: LIVER DISORDER
  3. COQ10 [Concomitant]
     Active Substance: UBIDECARENONE
     Indication: CARDIAC DISORDER
     Dosage: UNK
     Dates: start: 20150326
  4. CRANBERRY. [Concomitant]
     Active Substance: CRANBERRY
     Indication: PROPHYLAXIS URINARY TRACT INFECTION
     Dosage: UNK
     Dates: start: 20150326
  5. FISH OIL [Concomitant]
     Active Substance: FISH OIL
     Indication: BLOOD DISORDER
     Dosage: UNK
     Dates: start: 20150326
  6. FLAXSEED [Concomitant]
     Active Substance: FLAX SEED
     Indication: CARDIAC DISORDER
     Dosage: UNK
     Dates: start: 20150326
  7. OSTEO BI-FLEX [Concomitant]
     Active Substance: CHONDROITIN SULFATE A\GLUCOSAMINE
     Indication: ARTHROPATHY
     Dosage: UNK
     Dates: start: 20150326
  8. DAILY FIBER [Concomitant]
     Indication: SUPPLEMENTATION THERAPY
     Dosage: UNK, QD
  9. CINNAMON. [Concomitant]
     Active Substance: CINNAMON
     Indication: PRODUCT USED FOR UNKNOWN INDICATION
     Dosage: UNK
     Dates: start: 20150326
  10. XYREM [Suspect]
     Active Substance: SODIUM OXYBATE
     Indication: APNOEA
     Dosage: 2.25 G, BID
     Route: 048
     Dates: start: 20150429
  11. ULORIC [Concomitant]
     Active Substance: FEBUXOSTAT
     Indication: UNEVALUABLE EVENT
     Dosage: 40 MG, QD
     Dates: start: 20150326
  12. PHOSLO [Concomitant]
     Active Substance: CALCIUM ACETATE
     Indication: BLOOD PHOSPHORUS INCREASED
     Dosage: 667 MG, TID
     Dates: start: 20150326
  13. TRAVATAN Z [Concomitant]
     Active Substance: TRAVOPROST
     Indication: EYE DISORDER
     Dosage: 0.004 %, UNK
     Dates: start: 20150326
  14. VITAMIN D3 [Concomitant]
     Active Substance: CHOLECALCIFEROL
     Indication: BONE DISORDER
  15. IRON [Concomitant]
     Active Substance: IRON
     Indication: PRODUCT USED FOR UNKNOWN INDICATION
     Dosage: UNK
     Dates: start: 20150326
  16. VITAMIN D [Concomitant]
     Active Substance: CHOLECALCIFEROL
     Indication: SUPPLEMENTATION THERAPY
     Dosage: 1 ?G, QD
     Dates: start: 20150326
  17. VITAMIN D3 [Concomitant]
     Active Substance: CHOLECALCIFEROL
     Indication: TOOTH DISORDER
     Dosage: 1000 IU, UNK
  18. VITAMIN C [Concomitant]
     Active Substance: ASCORBIC ACID
     Indication: SUPPLEMENTATION THERAPY
     Dosage: UNK
     Dates: start: 20150326
  19. POTASSIUM CITRATE. [Concomitant]
     Active Substance: POTASSIUM CITRATE
     Indication: PRODUCT USED FOR UNKNOWN INDICATION
     Dosage: UNK
     Dates: start: 20150326
  20. VALSARTAN. [Concomitant]
     Active Substance: VALSARTAN
     Indication: BLOOD PRESSURE MEASUREMENT
     Dosage: 160 MG, QD
     Dates: start: 20150326
  21. NUVIGIL [Concomitant]
     Active Substance: ARMODAFINIL
     Indication: SOMNOLENCE
     Dosage: 250 MG, QD
     Dates: start: 20150326
  22. BUMETANIDE. [Concomitant]
     Active Substance: BUMETANIDE
     Indication: OEDEMA
     Dosage: 0.5 MG, BID
     Dates: start: 20150326
  23. PRADAXA [Concomitant]
     Active Substance: DABIGATRAN ETEXILATE MESYLATE
     Indication: ANTICOAGULANT THERAPY
     Dosage: 150 MG, BID
     Dates: start: 20150326
  24. ARGININE [Concomitant]
     Active Substance: ARGININE
     Indication: ASTHENIA
     Dosage: UNK
     Dates: start: 20150326
  25. PANTOPRAZOLE SODIUM. [Concomitant]
     Active Substance: PANTOPRAZOLE SODIUM
     Indication: ILL-DEFINED DISORDER
     Dosage: 40 MG, QD
     Dates: start: 20150326
  26. CALCIUM CITRATE [Concomitant]
     Active Substance: CALCIUM CITRATE
     Indication: MUSCLE SPASMS
     Dosage: UNK
     Dates: start: 20150326
  27. VITAMIN B12 [Concomitant]
     Active Substance: CYANOCOBALAMIN
     Indication: ASTHENIA
     Dosage: UNK
     Dates: start: 20150326
  28. VITAMIN D3 [Concomitant]
     Active Substance: CHOLECALCIFEROL
     Indication: IMMUNE SYSTEM DISORDER
  29. MILK THISTLE [Concomitant]
     Active Substance: MILK THISTLE
     Indication: RENAL DISORDER
     Dosage: UNK
     Dates: start: 20150326

REACTIONS (1)
  - Restlessness [Not Recovered/Not Resolved]

NARRATIVE: CASE EVENT DATE: 20150429
